FAERS Safety Report 24252824 (Version 1)
Quarter: 2024Q3

REPORT INFORMATION
  Report Type: Spontaneous
  Country: DE (occurrence: DE)
  Receive Date: 20240827
  Receipt Date: 20240827
  Transmission Date: 20241017
  Serious: Yes (Other)
  Sender: CELLTRION
  Company Number: DE-CELLTRION INC.-2024DE020161

PATIENT

DRUGS (2)
  1. INFLIXIMAB [Suspect]
     Active Substance: INFLIXIMAB
     Indication: Product used for unknown indication
     Dosage: SECOND INFUSION
     Route: 042
     Dates: start: 20240724
  2. PREDNISONE ACETATE [Concomitant]
     Active Substance: PREDNISONE ACETATE
     Indication: Premedication
     Dosage: 100 MG

REACTIONS (1)
  - Infusion related hypersensitivity reaction [Unknown]

NARRATIVE: CASE EVENT DATE: 20240724
